FAERS Safety Report 18165551 (Version 3)
Quarter: 2020Q3

REPORT INFORMATION
  Report Type: Report from Study
  Country: GB (occurrence: GB)
  Receive Date: 20200818
  Receipt Date: 20200904
  Transmission Date: 20201103
  Serious: Yes (Other)
  Sender: FDA-Public Use
  Company Number: PHHY2018GB089665

PATIENT
  Sex: Female

DRUGS (4)
  1. SANDOSTATIN LAR DEPOT [Suspect]
     Active Substance: OCTREOTIDE ACETATE
  2. SANDOSTATIN LAR DEPOT [Suspect]
     Active Substance: OCTREOTIDE ACETATE
  3. SANDOSTATIN LAR DEPOT [Suspect]
     Active Substance: OCTREOTIDE ACETATE
     Indication: NEUROENDOCRINE TUMOUR
     Dosage: 30 MG, QMO (EVERY 4 WEEKS)
     Route: 030
     Dates: start: 2011
  4. IRON [Suspect]
     Active Substance: IRON
     Indication: BLOOD IRON DECREASED
     Dosage: UNK
     Route: 065

REACTIONS (12)
  - Breast cyst [Unknown]
  - Fall [Unknown]
  - Needle issue [Unknown]
  - Cartilage injury [Unknown]
  - Hepatic neoplasm [Unknown]
  - Vasculitis [Recovered/Resolved]
  - Diarrhoea [Unknown]
  - Blood iron increased [Unknown]
  - Musculoskeletal chest pain [Unknown]
  - Underdose [Unknown]
  - Injection site pain [Unknown]
  - Blood iron decreased [Unknown]
